FAERS Safety Report 14404308 (Version 1)
Quarter: 2018Q1

REPORT INFORMATION
  Report Type: Report from Study
  Country: US (occurrence: US)
  Receive Date: 20180117
  Receipt Date: 20180117
  Transmission Date: 20180509
  Serious: Yes (Other)
  Sender: FDA-Public Use
  Company Number: US-GILEAD-2018-0316076

PATIENT
  Age: 77 Year
  Sex: Male

DRUGS (10)
  1. LASIX [Concomitant]
     Active Substance: FUROSEMIDE
     Indication: CARDIAC FAILURE CONGESTIVE
     Dosage: UNK
     Route: 042
     Dates: end: 20180109
  2. BUMETANIDE. [Concomitant]
     Active Substance: BUMETANIDE
     Indication: CARDIAC FAILURE CONGESTIVE
     Dosage: 2 MG, BID
     Route: 048
     Dates: start: 20180109
  3. MINOXIDIL. [Concomitant]
     Active Substance: MINOXIDIL
     Indication: CARDIAC FAILURE CONGESTIVE
     Dosage: 1 DF, BID
     Dates: end: 20180109
  4. ALLOPURINOL. [Concomitant]
     Active Substance: ALLOPURINOL
     Indication: GOUT
     Dosage: NOT PROVIDED, BY MOUTH
     Route: 048
  5. IDELALISIB [Suspect]
     Active Substance: IDELALISIB
     Indication: CHRONIC LYMPHOCYTIC LEUKAEMIA
     Dosage: 150 MG, BID
     Route: 048
     Dates: start: 20161216
  6. BUMETANIDE. [Concomitant]
     Active Substance: BUMETANIDE
     Dosage: 2 MG, QD
     Route: 048
     Dates: start: 20180112
  7. CHERRY EXTRACT [Concomitant]
     Active Substance: CHERRY EXTRACT
     Indication: GOUT
     Dosage: QD
  8. TYLENOL [Concomitant]
     Active Substance: ACETAMINOPHEN
     Indication: GOUT
     Dosage: UNK UNK, PRN
     Route: 048
     Dates: start: 201710
  9. STRONG PAIN MEDICATION, NAME NOT PROVIDED [Concomitant]
     Indication: FRACTURE PAIN
     Dosage: UNK UNK, PRN
     Route: 048
     Dates: start: 201703
  10. SHORT TERM GOUT MEDICATION, NAME UNKNOWN [Concomitant]
     Indication: GOUT
     Dosage: NOT PROVIDED, BY MOUTH
     Route: 048
     Dates: start: 201710

REACTIONS (7)
  - Spinal fracture [Recovered/Resolved]
  - Fall [Recovered/Resolved]
  - Renal impairment [Recovering/Resolving]
  - Skin ulcer [Recovering/Resolving]
  - Weight decreased [Recovered/Resolved]
  - Cardiac failure congestive [Not Recovered/Not Resolved]
  - Gout [Recovered/Resolved]

NARRATIVE: CASE EVENT DATE: 201703
